FAERS Safety Report 11749034 (Version 2)
Quarter: 2016Q1

REPORT INFORMATION
  Report Type: Spontaneous
  Country: US (occurrence: US)
  Receive Date: 20151118
  Receipt Date: 20160113
  Transmission Date: 20160525
  Serious: Yes (Other)
  Sender: FDA-Public Use
  Company Number: US-BEH-2015055760

PATIENT
  Age: 74 Year
  Sex: Female
  Weight: 99 kg

DRUGS (13)
  1. DIOVAN [Concomitant]
     Active Substance: VALSARTAN
  2. EPIPEN [Concomitant]
     Active Substance: EPINEPHRINE
  3. ALEVE [Concomitant]
     Active Substance: NAPROXEN SODIUM
  4. HIZENTRA [Suspect]
     Active Substance: HUMAN IMMUNOGLOBULIN G
     Route: 058
  5. METOPROLOL SUCCINATE ER [Concomitant]
     Active Substance: METOPROLOL SUCCINATE
  6. KLONOPIN [Concomitant]
     Active Substance: CLONAZEPAM
  7. LASIX [Concomitant]
     Active Substance: FUROSEMIDE
  8. LEVOTHROID [Concomitant]
     Active Substance: LEVOTHYROXINE SODIUM
  9. TRAZODONE [Concomitant]
     Active Substance: TRAZODONE HYDROCHLORIDE
  10. LIPITOR [Concomitant]
     Active Substance: ATORVASTATIN CALCIUM
  11. HIZENTRA [Suspect]
     Active Substance: HUMAN IMMUNOGLOBULIN G
     Indication: IMMUNODEFICIENCY COMMON VARIABLE
     Route: 058
  12. HIZENTRA [Suspect]
     Active Substance: HUMAN IMMUNOGLOBULIN G
     Route: 058
  13. SPIRONOLACTONE. [Concomitant]
     Active Substance: SPIRONOLACTONE

REACTIONS (2)
  - Cystitis [Unknown]
  - Renal impairment [Unknown]

NARRATIVE: CASE EVENT DATE: 201511
